FAERS Safety Report 7326851-1 (Version None)
Quarter: 2011Q1

REPORT INFORMATION
  Report Type: 
  Country: None (occurrence: None)
  Receive Date: 20110302
  Receipt Date: 20110224
  Transmission Date: 20110831
  Serious: Yes (Hospitalization, Disabling, Other)
  Sender: FDA-Public Use
  Company Number: US-PFIZER INC-2010171738

PATIENT
  Sex: Male

DRUGS (19)
  1. OXYCODONE [Concomitant]
     Indication: BACK PAIN
     Dosage: UNK
     Dates: start: 20060101
  2. OXYCODONE [Concomitant]
     Indication: INJURY
  3. CARISOPRODOL [Concomitant]
     Indication: CONVULSION
  4. OXYCONTIN [Concomitant]
     Indication: BACK PAIN
     Dosage: UNK
     Dates: start: 20070101
  5. OXYCODONE [Concomitant]
     Indication: ANALGESIC THERAPY
  6. OXYCODONE [Concomitant]
     Indication: LOSS OF CONSCIOUSNESS
  7. OXYCONTIN [Concomitant]
     Indication: NECK PAIN
  8. CARISOPRODOL [Concomitant]
     Indication: NECK PAIN
  9. CARISOPRODOL [Concomitant]
     Indication: ANALGESIC THERAPY
  10. OXYCONTIN [Concomitant]
     Indication: ANALGESIC THERAPY
  11. OXYCONTIN [Concomitant]
     Indication: CONVULSION
  12. CHANTIX [Suspect]
     Indication: SMOKING CESSATION THERAPY
     Dosage: CHANTIX STARTER AND CONTINUING MONTH PACK
     Dates: start: 20080201, end: 20080315
  13. CARISOPRODOL [Concomitant]
     Indication: INJURY
  14. OXYCODONE [Concomitant]
     Indication: CONVULSION
  15. OXYCONTIN [Concomitant]
     Indication: LOSS OF CONSCIOUSNESS
  16. CARISOPRODOL [Concomitant]
     Indication: BACK PAIN
     Dosage: UNK
     Dates: start: 20060101
  17. OXYCODONE [Concomitant]
     Indication: NECK PAIN
  18. OXYCONTIN [Concomitant]
     Indication: INJURY
  19. CARISOPRODOL [Concomitant]
     Indication: LOSS OF CONSCIOUSNESS

REACTIONS (10)
  - LOSS OF CONSCIOUSNESS [None]
  - CONVULSION [None]
  - ABNORMAL DREAMS [None]
  - SUICIDAL IDEATION [None]
  - NIGHTMARE [None]
  - ROAD TRAFFIC ACCIDENT [None]
  - DEPRESSION [None]
  - NECK PAIN [None]
  - BACK PAIN [None]
  - SPINAL COMPRESSION FRACTURE [None]
